FAERS Safety Report 8137530-5 (Version None)
Quarter: 2012Q1

REPORT INFORMATION
  Report Type: 
  Country: None (occurrence: None)
  Receive Date: 20120215
  Receipt Date: 20120210
  Transmission Date: 20120608
  Serious: Yes (Other)
  Sender: FDA-Public Use
  Company Number: US-BAYER-2012-014216

PATIENT

DRUGS (1)
  1. BETASERON [Suspect]
     Dosage: UNKNOWN
     Route: 065

REACTIONS (2)
  - CAPILLARY DISORDER [None]
  - PULMONARY OEDEMA [None]
